FAERS Safety Report 8144686-7 (Version None)
Quarter: 2012Q1

REPORT INFORMATION
  Report Type: 
  Country: None (occurrence: None)
  Receive Date: 20120217
  Receipt Date: 20120214
  Transmission Date: 20120608
  Serious: Yes (Other)
  Sender: FDA-Public Use
  Company Number: US-PFIZER INC-2011276517

PATIENT
  Sex: Female

DRUGS (2)
  1. DILANTIN-125 [Suspect]
     Dosage: 50MG, UNK
  2. DILANTIN-125 [Suspect]
     Dosage: 200 MG, UNK

REACTIONS (2)
  - CONVULSION [None]
  - CHOKING [None]
